FAERS Safety Report 4775410-3 (Version None)
Quarter: 2005Q3

REPORT INFORMATION
  Report Type: 
  Country: None (occurrence: None)
  Receive Date: 20050921
  Receipt Date: 20050921
  Transmission Date: 20060218
  Serious: Yes (Other)
  Sender: FDA-Public Use
  Company Number: None

PATIENT
  Age: 67 Year
  Sex: Male
  Weight: 105.2345 kg

DRUGS (1)
  1. LITHIUM    300 MG [Suspect]
     Dosage: 900 MG   DAILY   PO
     Route: 048

REACTIONS (1)
  - NEPHROGENIC DIABETES INSIPIDUS [None]
